FAERS Safety Report 14188188 (Version 1)
Quarter: 2017Q4

REPORT INFORMATION
  Report Type: Report from Study
  Country: US (occurrence: US)
  Receive Date: 20171114
  Receipt Date: 20171114
  Transmission Date: 20180321
  Serious: No
  Sender: FDA-Public Use
  Company Number: US-TARO-2017TAR00668

PATIENT
  Age: 65 Year
  Sex: Female
  Weight: 61.22 kg

DRUGS (7)
  1. VITAMIN K [Concomitant]
     Active Substance: PHYTONADIONE
  2. TRIAMCINOLONE ACETONIDE OINTMENT USP 0.1% [Suspect]
     Active Substance: TRIAMCINOLONE ACETONIDE
     Indication: DERMATITIS CONTACT
     Dosage: UNK UNK, 2X/DAY
     Route: 061
     Dates: start: 20170731, end: 20170805
  3. FISH OIL [Concomitant]
     Active Substance: FISH OIL
  4. MULTIVITAMIN [Concomitant]
     Active Substance: VITAMINS
  5. AMBIEN [Concomitant]
     Active Substance: ZOLPIDEM TARTRATE
     Dosage: 0.25 DOSAGE UNITS, AS NEEDED
  6. VITAMIN D [Concomitant]
     Active Substance: CHOLECALCIFEROL
  7. CALCIUM [Concomitant]
     Active Substance: CALCIUM

REACTIONS (4)
  - Heart rate increased [Recovered/Resolved]
  - Insomnia [Recovered/Resolved]
  - Incorrect drug administration duration [Recovered/Resolved]
  - Palpitations [Recovered/Resolved]

NARRATIVE: CASE EVENT DATE: 20170731
